FAERS Safety Report 19279491 (Version 13)
Quarter: 2024Q2

REPORT INFORMATION
  Report Type: Spontaneous
  Country: PL (occurrence: PL)
  Receive Date: 20210520
  Receipt Date: 20240409
  Transmission Date: 20240716
  Serious: Yes (Life-Threatening, Hospitalization, Other)
  Sender: FDA-Public Use
  Company Number: PL-KRKA-PL2020K19992LIT

PATIENT
  Age: 42 Year
  Sex: Male

DRUGS (51)
  1. FENTANYL [Suspect]
     Active Substance: FENTANYL\FENTANYL CITRATE
     Indication: Mastocytosis
     Dosage: 200 MCG IN EXACERBATIONS OF PAIN
     Route: 002
  2. FENTANYL [Suspect]
     Active Substance: FENTANYL\FENTANYL CITRATE
     Indication: Arthralgia
     Dosage: PRN (BUCCAL TABLETS, AS NEEDED )
     Route: 065
  3. FENTANYL [Suspect]
     Active Substance: FENTANYL\FENTANYL CITRATE
     Indication: Pain
     Dosage: ADM MORE THAN 4 TIMES PER DAY DUE TO THE FREQUENT EXCEEDING OF FOUR ADMINISTRATIONS A DAY
     Route: 002
  4. FENTANYL [Suspect]
     Active Substance: FENTANYL\FENTANYL CITRATE
     Indication: Breakthrough pain
     Dosage: UNK
     Route: 065
  5. FENTANYL [Suspect]
     Active Substance: FENTANYL\FENTANYL CITRATE
     Dosage: 800 MICROGRAM, QD
     Route: 002
  6. GABAPENTIN [Suspect]
     Active Substance: GABAPENTIN
     Indication: Arthralgia
     Dosage: 1200 MG, QD (300 MG, 4X PER DAY)
     Route: 065
  7. GABAPENTIN [Suspect]
     Active Substance: GABAPENTIN
     Indication: Pain
     Dosage: 300 MILLIGRAM, Q8H (GABAPENTIN AT A DOSE OF 300 MG EVERY 8 HOURS)
     Route: 065
  8. GABAPENTIN [Suspect]
     Active Substance: GABAPENTIN
     Dosage: 300 MILLIGRAM, Q3D
     Route: 065
  9. PREGABALIN [Suspect]
     Active Substance: PREGABALIN
     Indication: Pain
     Dosage: 150 MILLIGRAM
     Route: 065
  10. PREGABALIN [Suspect]
     Active Substance: PREGABALIN
     Dosage: 300 MILLIGRAM, QD (150 MG, 2X PER DAY)
     Route: 065
  11. PREGABALIN [Suspect]
     Active Substance: PREGABALIN
     Dosage: UNK
     Route: 065
  12. TRAMADOL [Suspect]
     Active Substance: TRAMADOL\TRAMADOL HYDROCHLORIDE
     Indication: Mastocytosis
     Dosage: UNK
     Route: 065
  13. TRAMADOL [Suspect]
     Active Substance: TRAMADOL\TRAMADOL HYDROCHLORIDE
     Indication: Arthralgia
     Dosage: UNK
     Route: 065
  14. TRAMADOL [Suspect]
     Active Substance: TRAMADOL\TRAMADOL HYDROCHLORIDE
     Indication: Systemic mastocytosis
  15. TRAMADOL [Suspect]
     Active Substance: TRAMADOL\TRAMADOL HYDROCHLORIDE
     Indication: Pain
  16. IBUPROFEN [Suspect]
     Active Substance: IBUPROFEN
     Indication: Pain
     Dosage: UNK
     Route: 065
  17. IBUPROFEN [Suspect]
     Active Substance: IBUPROFEN
     Indication: Analgesic therapy
     Dosage: UNK
     Route: 065
  18. IBUPROFEN [Suspect]
     Active Substance: IBUPROFEN
     Indication: Arthralgia
  19. IBUPROFEN [Suspect]
     Active Substance: IBUPROFEN
     Indication: Bone pain
  20. IBUPROFEN [Suspect]
     Active Substance: IBUPROFEN
     Indication: Systemic mastocytosis
  21. IBUPROFEN [Suspect]
     Active Substance: IBUPROFEN
     Indication: Mastocytosis
  22. ACETAMINOPHEN [Suspect]
     Active Substance: ACETAMINOPHEN
     Indication: Pain
     Dosage: UNK
     Route: 065
  23. ACETAMINOPHEN [Suspect]
     Active Substance: ACETAMINOPHEN
     Indication: Analgesic therapy
  24. ACETAMINOPHEN [Suspect]
     Active Substance: ACETAMINOPHEN
     Indication: Arthralgia
  25. ACETAMINOPHEN [Suspect]
     Active Substance: ACETAMINOPHEN
     Indication: Bone pain
  26. ACETAMINOPHEN [Suspect]
     Active Substance: ACETAMINOPHEN
     Indication: Mastocytosis
  27. OXYCODONE [Suspect]
     Active Substance: OXYCODONE\OXYCODONE HYDROCHLORIDE
     Indication: Pain
     Dosage: 320 MG, QD (80 MG, 4X PER DAY)
     Route: 048
  28. OXYCODONE [Suspect]
     Active Substance: OXYCODONE\OXYCODONE HYDROCHLORIDE
     Indication: Arthralgia
     Dosage: 400 MG, QD (100 MG, 4X PER DAY)
     Route: 065
  29. OXYCODONE [Suspect]
     Active Substance: OXYCODONE\OXYCODONE HYDROCHLORIDE
     Dosage: 240 MGDAILY; CONTROLLED-RELEASE TABLETS
     Route: 065
  30. OXYCODONE [Suspect]
     Active Substance: OXYCODONE\OXYCODONE HYDROCHLORIDE
     Dosage: 100 MILLIGRAM, Q8H
     Route: 065
  31. OXYCODONE [Suspect]
     Active Substance: OXYCODONE\OXYCODONE HYDROCHLORIDE
     Dosage: UNK, BID
     Route: 065
  32. OXYCODONE [Suspect]
     Active Substance: OXYCODONE\OXYCODONE HYDROCHLORIDE
     Dosage: 100 MILLIGRAM, TID
     Route: 065
  33. METAMIZOLE [Suspect]
     Active Substance: METAMIZOLE
     Indication: Pain
     Dosage: UNK
     Route: 065
  34. METAMIZOLE [Suspect]
     Active Substance: METAMIZOLE
     Indication: Analgesic therapy
  35. METAMIZOLE [Suspect]
     Active Substance: METAMIZOLE
     Indication: Arthralgia
  36. METAMIZOLE [Suspect]
     Active Substance: METAMIZOLE
     Indication: Bone pain
  37. METAMIZOLE [Suspect]
     Active Substance: METAMIZOLE
     Indication: Mastocytosis
  38. MORPHINE [Suspect]
     Active Substance: MORPHINE
     Indication: Pain
     Dosage: UNK
     Route: 065
  39. MORPHINE [Suspect]
     Active Substance: MORPHINE
     Indication: Analgesic therapy
  40. MORPHINE [Suspect]
     Active Substance: MORPHINE
     Indication: Arthralgia
  41. MORPHINE [Suspect]
     Active Substance: MORPHINE
     Indication: Bone pain
  42. MORPHINE [Suspect]
     Active Substance: MORPHINE
     Indication: Mastocytosis
  43. KETOPROFEN [Suspect]
     Active Substance: KETOPROFEN
     Indication: Pain
     Dosage: UNK
     Route: 065
  44. KETOPROFEN [Suspect]
     Active Substance: KETOPROFEN
     Indication: Analgesic therapy
  45. KETOPROFEN [Suspect]
     Active Substance: KETOPROFEN
     Indication: Arthralgia
  46. KETOPROFEN [Suspect]
     Active Substance: KETOPROFEN
     Indication: Bone pain
  47. KETOPROFEN [Suspect]
     Active Substance: KETOPROFEN
     Indication: Systemic mastocytosis
  48. KETOPROFEN [Suspect]
     Active Substance: KETOPROFEN
     Indication: Mastocytosis
  49. FENTANYL [Suspect]
     Active Substance: FENTANYL\FENTANYL CITRATE
     Indication: Arthralgia
     Dosage: UNK
     Route: 045
  50. FENTANYL [Suspect]
     Active Substance: FENTANYL\FENTANYL CITRATE
     Indication: Mastocytosis
     Dosage: ADM MORE THAN 4 TIMES PER DAY DUE TO THE FREQUENT EXCEEDING OF FOUR ADMINISTRATIONS A DAY
     Route: 065
  51. CLADRIBINE [Concomitant]
     Active Substance: CLADRIBINE
     Indication: Systemic mastocytosis
     Dosage: UNK
     Route: 065

REACTIONS (13)
  - Anaphylactic reaction [Not Recovered/Not Resolved]
  - Anaphylactic shock [Recovered/Resolved]
  - Teething [Not Recovered/Not Resolved]
  - Drug intolerance [Unknown]
  - Constipation [Unknown]
  - Toothache [Not Recovered/Not Resolved]
  - Drug dependence [Recovered/Resolved]
  - Gingival pain [Not Recovered/Not Resolved]
  - Hypersensitivity [Recovered/Resolved]
  - Rhinitis allergic [Recovered/Resolved]
  - Therapeutic product effect incomplete [Unknown]
  - Therapeutic response decreased [Unknown]
  - Product use in unapproved indication [Unknown]
